FAERS Safety Report 16739755 (Version 1)
Quarter: 2019Q3

REPORT INFORMATION
  Report Type: Spontaneous
  Country: US (occurrence: US)
  Receive Date: 20190826
  Receipt Date: 20190826
  Transmission Date: 20191005
  Serious: Yes (Other)
  Sender: FDA-Public Use
  Company Number: US-ACCORD-152675

PATIENT
  Age: 7 Decade
  Sex: Male

DRUGS (1)
  1. CAPECITABINE. [Suspect]
     Active Substance: CAPECITABINE
     Indication: SKIN CANCER
     Dosage: SYSTEMIC

REACTIONS (2)
  - Transaminases increased [Unknown]
  - Blood creatinine increased [Unknown]
